FAERS Safety Report 8272991-2 (Version None)
Quarter: 2012Q2

REPORT INFORMATION
  Report Type: 
  Country: None (occurrence: None)
  Receive Date: 20120411
  Receipt Date: 20120330
  Transmission Date: 20120825
  Serious: Yes (Other)
  Sender: FDA-Public Use
  Company Number: US-JNJFOC-20120401018

PATIENT
  Sex: Female
  Weight: 64.86 kg

DRUGS (2)
  1. IRON [Concomitant]
     Indication: CROHN'S DISEASE
     Route: 065
     Dates: start: 20100101, end: 20110101
  2. REMICADE [Suspect]
     Indication: CROHN'S DISEASE
     Route: 042
     Dates: start: 20070101, end: 20110101

REACTIONS (3)
  - SWELLING [None]
  - INFLUENZA LIKE ILLNESS [None]
  - LUPUS-LIKE SYNDROME [None]
